FAERS Safety Report 12558251 (Version 1)
Quarter: 2016Q3

REPORT INFORMATION
  Report Type: Spontaneous
  Country: DE (occurrence: DE)
  Receive Date: 20160714
  Receipt Date: 20160714
  Transmission Date: 20161109
  Serious: Yes (Other)
  Sender: FDA-Public Use
  Company Number: GXKR2016DE003290

PATIENT

DRUGS (9)
  1. FRAGMIN [Concomitant]
     Active Substance: DALTEPARIN SODIUM
     Indication: THROMBOSIS PROPHYLAXIS
     Dosage: 5000 [I.E./D ]
     Route: 064
     Dates: start: 20150614, end: 20150815
  2. DEXAMETHASONE. [Concomitant]
     Active Substance: DEXAMETHASONE
     Indication: PROTEIN DEFICIENCY
     Dosage: 0.5 [MG/D ]/ DRUG TREATMENT INDICATION??
     Route: 064
     Dates: start: 20150604, end: 20150715
  3. FOLIO FORTE [Concomitant]
     Active Substance: FOLIC ACID\VITAMINS
     Indication: PROPHYLAXIS OF NEURAL TUBE DEFECT
     Dosage: 0.8 [MG/D (BIS 0.4 MG/D) ]
     Route: 064
     Dates: start: 20150601, end: 20160304
  4. COLECALCIFEROL [Concomitant]
     Active Substance: CHOLECALCIFEROL
     Indication: VITAMIN D DEFICIENCY
     Dosage: 1000 [I.U./D ]
     Route: 064
     Dates: start: 20150601, end: 20150706
  5. VENLAFAXINE [Suspect]
     Active Substance: VENLAFAXINE HYDROCHLORIDE
     Indication: DEPRESSION
     Dosage: 150 [MG/D ]
     Route: 064
     Dates: start: 20150601, end: 20160304
  6. INFLUVAC [Concomitant]
     Active Substance: INFLUENZA VIRUS VACCINE
     Indication: IMMUNISATION
     Route: 064
     Dates: start: 20150926, end: 20150926
  7. BIOTIN [Concomitant]
     Active Substance: BIOTIN
     Indication: BIOTIN DEFICIENCY
     Dosage: 5 [MG/D ]
     Route: 064
     Dates: start: 20150601, end: 20160304
  8. PROGESTAN [Concomitant]
     Active Substance: PROGESTERONE
     Indication: PROPHYLAXIS OF ABORTION
     Dosage: 300 [MG/D (3X100) ]; GW 2 TO 15.1
     Route: 064
  9. CRINONE [Concomitant]
     Active Substance: PROGESTERONE
     Indication: PROPHYLAXIS OF ABORTION
     Dosage: GW 2 TO 15.1
     Route: 064
     Dates: start: 20150615, end: 20150915

REACTIONS (1)
  - Small for dates baby [Unknown]

NARRATIVE: CASE EVENT DATE: 20160304
